FAERS Safety Report 25680068 (Version 1)
Quarter: 2025Q3

REPORT INFORMATION
  Report Type: Spontaneous
  Country: EU (occurrence: EU)
  Receive Date: 20250814
  Receipt Date: 20250814
  Transmission Date: 20251020
  Serious: Yes (Other)
  Sender: TEVA
  Company Number: EU-TEVA-VS-3361022

PATIENT
  Age: 30 Year
  Sex: Male

DRUGS (5)
  1. TACROLIMUS [Suspect]
     Active Substance: TACROLIMUS
     Indication: Immunosuppressant drug therapy
     Route: 065
  2. EVEROLIMUS [Suspect]
     Active Substance: EVEROLIMUS
     Indication: Immunosuppressant drug therapy
     Route: 065
     Dates: start: 202104
  3. MYCOPHENOLATE MOFETIL [Suspect]
     Active Substance: MYCOPHENOLATE MOFETIL
     Indication: Immunosuppressant drug therapy
     Route: 065
     Dates: end: 202104
  4. TOZINAMERAN [Suspect]
     Active Substance: TOZINAMERAN
     Indication: COVID-19 immunisation
     Route: 065
     Dates: start: 20210713
  5. TOZINAMERAN [Suspect]
     Active Substance: TOZINAMERAN
     Indication: COVID-19 immunisation
     Route: 065
     Dates: start: 20210803

REACTIONS (2)
  - Anogenital warts [Unknown]
  - IgA nephropathy [Unknown]

NARRATIVE: CASE EVENT DATE: 20210401
